FAERS Safety Report 13182687 (Version 4)
Quarter: 2020Q3

REPORT INFORMATION
  Report Type: Spontaneous
  Country: US (occurrence: US)
  Receive Date: 20170203
  Receipt Date: 20200723
  Transmission Date: 20201102
  Serious: Yes (Other)
  Sender: FDA-Public Use
  Company Number: US-PFIZER INC-2017045478

PATIENT
  Age: 56 Year
  Sex: Female

DRUGS (2)
  1. XELJANZ [Suspect]
     Active Substance: TOFACITINIB CITRATE
     Dosage: 5 MG
     Route: 048
  2. XELJANZ [Suspect]
     Active Substance: TOFACITINIB CITRATE
     Indication: RHEUMATOID ARTHRITIS
     Dosage: 5 MG, 2X/DAY
     Route: 048
     Dates: start: 20160420

REACTIONS (6)
  - Bronchiolitis [Unknown]
  - Herpes zoster [Unknown]
  - Limb injury [Unknown]
  - Nasopharyngitis [Unknown]
  - Parkinson^s disease [Unknown]
  - Sinusitis [Unknown]

NARRATIVE: CASE EVENT DATE: 201908
